FAERS Safety Report 8492048-5 (Version None)
Quarter: 2012Q3

REPORT INFORMATION
  Report Type: 
  Country: None (occurrence: None)
  Receive Date: 20120706
  Receipt Date: 20120702
  Transmission Date: 20120928
  Serious: Yes (Hospitalization, Other)
  Sender: FDA-Public Use
  Company Number: GB-PFIZER INC-2012127799

PATIENT
  Sex: Female

DRUGS (7)
  1. TRABECTEDIN [Suspect]
     Dosage: TOTAL DOSE 2040 MCG
     Dates: start: 20120321
  2. DICLOFENAC [Concomitant]
     Dosage: 75 MG, 2X/DAY
  3. TRABECTEDIN [Suspect]
     Dosage: TOTAL DOSE 2040 MCG
     Dates: start: 20120411
  4. DOXORUBICIN HCL [Suspect]
     Dosage: UNK
     Route: 065
  5. TRABECTEDIN [Suspect]
     Indication: SARCOMA
     Dosage: TOTAL DOSE 2040 MCG
     Route: 042
     Dates: start: 20120229
  6. PARACETAMOL [Concomitant]
     Dosage: 1 G, 1X/DAY
  7. DOMPERIDONE [Concomitant]
     Indication: NAUSEA
     Dosage: 20 MG, UNK

REACTIONS (1)
  - PERICARDITIS [None]
